FAERS Safety Report 6645395-3 (Version None)
Quarter: 2010Q1

REPORT INFORMATION
  Report Type: 
  Country: None (occurrence: None)
  Receive Date: 20100322
  Receipt Date: 20100310
  Transmission Date: 20100710
  Serious: Yes (Hospitalization)
  Sender: FDA-Public Use
  Company Number: US-GILEAD-2010-0027875

PATIENT
  Sex: Male
  Weight: 52.3 kg

DRUGS (10)
  1. EMTRICITABINE/TENOFOVIR DISOPROXIL FUMARATE [Suspect]
     Indication: HIV INFECTION
     Route: 048
     Dates: start: 20090728, end: 20100210
  2. ATAZANAVIR [Suspect]
     Indication: HIV INFECTION
     Dates: start: 20090728, end: 20100210
  3. RITONAVIR [Suspect]
     Indication: HIV INFECTION
     Dates: start: 20090728, end: 20100210
  4. ACETAMINOPHEN [Concomitant]
     Dates: start: 20090804
  5. ANDROGEL [Concomitant]
  6. BENZOYL PEROXIDE ERYTHROMYCIN [Concomitant]
  7. FLUCONAZOLE [Concomitant]
  8. NICOTINE [Concomitant]
  9. NUTRIFOCUS [Concomitant]
  10. TAZORAC [Concomitant]

REACTIONS (2)
  - HEADACHE [None]
  - SINUSITIS [None]
